FAERS Safety Report 9434823 (Version 1)
Quarter: 2013Q3

REPORT INFORMATION
  Report Type: Spontaneous
  Country: US (occurrence: None)
  Receive Date: 20130731
  Receipt Date: 20130731
  Transmission Date: 20140515
  Serious: Yes (Other)
  Sender: FDA-Public Use
  Company Number: None

PATIENT
  Age: 60 Year
  Sex: Male
  Weight: 78.47 kg

DRUGS (1)
  1. ANDRODERM [Suspect]
     Dates: start: 20121201, end: 20130301

REACTIONS (2)
  - Prostatic specific antigen increased [None]
  - Prostatomegaly [None]
